FAERS Safety Report 17979023 (Version 1)
Quarter: 2020Q3

REPORT INFORMATION
  Report Type: Spontaneous
  Country: GB (occurrence: GB)
  Receive Date: 20200703
  Receipt Date: 20200703
  Transmission Date: 20201103
  Serious: Yes (Disabling, Other)
  Sender: FDA-Public Use
  Company Number: GB-TEVA-2020-GB-1794047

PATIENT
  Age: 37 Year
  Sex: Female
  Weight: 44.45 kg

DRUGS (6)
  1. METRONIDAZOLE. [Concomitant]
     Active Substance: METRONIDAZOLE
  2. CO?AMOXICLAV [Concomitant]
     Active Substance: AMOXICILLIN\CLAVULANATE POTASSIUM
  3. OFLOXACIN. [Suspect]
     Active Substance: OFLOXACIN
     Indication: PELVIC INFLAMMATORY DISEASE
     Dosage: 800 MG
     Route: 048
     Dates: start: 20200505, end: 20200519
  4. NITROFURANTOIN. [Concomitant]
     Active Substance: NITROFURANTOIN
  5. RIGEVIDON [Concomitant]
  6. TRIMETHOPRIM. [Concomitant]
     Active Substance: TRIMETHOPRIM

REACTIONS (3)
  - Pain in extremity [Unknown]
  - Tendon disorder [Not Recovered/Not Resolved]
  - Tendon pain [Not Recovered/Not Resolved]

NARRATIVE: CASE EVENT DATE: 202005
